FAERS Safety Report 21243856 (Version 1)
Quarter: 2022Q3

REPORT INFORMATION
  Report Type: Spontaneous
  Country: US (occurrence: None)
  Receive Date: 20220823
  Receipt Date: 20220823
  Transmission Date: 20221027
  Serious: Yes (Other)
  Sender: FDA-Public Use
  Company Number: US-Emmaus Medical, Inc.-EMM202108-000126

PATIENT
  Sex: Male

DRUGS (2)
  1. ENDARI [Suspect]
     Active Substance: GLUTAMINE
     Indication: Sickle cell anaemia
     Route: 048
     Dates: start: 20200313
  2. ENDARI [Suspect]
     Active Substance: GLUTAMINE
     Dates: start: 20200313

REACTIONS (3)
  - Sickle cell anaemia with crisis [Unknown]
  - Osteonecrosis [Not Recovered/Not Resolved]
  - Product dose omission issue [Unknown]
